FAERS Safety Report 13885490 (Version 2)
Quarter: 2017Q4

REPORT INFORMATION
  Report Type: Spontaneous
  Country: US (occurrence: US)
  Receive Date: 20170821
  Receipt Date: 20171003
  Transmission Date: 20180320
  Serious: Yes (Other)
  Sender: FDA-Public Use
  Company Number: US-PFIZER INC-2017355314

PATIENT
  Age: 62 Year
  Sex: Female

DRUGS (1)
  1. XELJANZ XR [Suspect]
     Active Substance: TOFACITINIB CITRATE
     Indication: RHEUMATOID ARTHRITIS
     Dosage: 11 MG, DAILY
     Route: 048
     Dates: start: 201708

REACTIONS (11)
  - Ear disorder [Unknown]
  - Headache [Unknown]
  - Dysgeusia [Unknown]
  - Irritable bowel syndrome [Unknown]
  - Muscle twitching [Unknown]
  - Drug ineffective [Unknown]
  - Abdominal pain upper [Unknown]
  - Malaise [Unknown]
  - Asthenia [Unknown]
  - Bronchitis [Unknown]
  - Pneumonia [Unknown]

NARRATIVE: CASE EVENT DATE: 20170813
